FAERS Safety Report 5636760-1 (Version None)
Quarter: 2008Q1

REPORT INFORMATION
  Report Type: 
  Country: None (occurrence: None)
  Receive Date: 20080219
  Receipt Date: 20080219
  Transmission Date: 20080703
  Serious: Yes (Life-Threatening)
  Sender: FDA-Public Use
  Company Number: None

PATIENT
  Age: 59 Year
  Sex: Male

DRUGS (1)
  1. PERFLUTREN [Suspect]
     Dosage: 3.26MG ONCE IV
     Route: 042
     Dates: start: 20071204, end: 20071204

REACTIONS (5)
  - CARDIO-RESPIRATORY ARREST [None]
  - FLUSHING [None]
  - HYPOTENSION [None]
  - SYNCOPE [None]
  - TACHYCARDIA [None]
